FAERS Safety Report 4771800-3 (Version None)
Quarter: 2005Q3

REPORT INFORMATION
  Report Type: 
  Country: None (occurrence: None)
  Receive Date: 20050916
  Receipt Date: 20050915
  Transmission Date: 20060218
  Serious: Yes (Death, Other)
  Sender: FDA-Public Use
  Company Number: JP-SANOFI-SYNTHELABO-F01200501889

PATIENT
  Age: 68 Year
  Sex: Female

DRUGS (3)
  1. OXALIPLATIN [Suspect]
     Indication: RECTAL CANCER
     Route: 042
     Dates: start: 20050812, end: 20050812
  2. FLUOROURACIL [Suspect]
     Dosage: 450 MG IV BOLUS AND 600 MG IV CONTINUOUS INFUSION DAYS 1+2, Q2W
     Route: 042
     Dates: start: 20050812, end: 20050813
  3. CALCIUM LEVOFOLINATE [Suspect]
     Route: 042
     Dates: start: 20050812, end: 20050813

REACTIONS (2)
  - LEUKOPENIA [None]
  - SEPTIC SHOCK [None]
